FAERS Safety Report 8458880-9 (Version None)
Quarter: 2012Q2

REPORT INFORMATION
  Report Type: 
  Country: None (occurrence: None)
  Receive Date: 20120622
  Receipt Date: 20120615
  Transmission Date: 20120825
  Serious: Yes (Hospitalization)
  Sender: FDA-Public Use
  Company Number: FR-SANOFI-AVENTIS-2012SA015953

PATIENT
  Age: 81 Year
  Sex: Female

DRUGS (4)
  1. CLAFORAN [Suspect]
     Indication: BRONCHITIS
     Route: 042
     Dates: start: 20111225, end: 20120101
  2. AUGMENTIN '125' [Suspect]
     Indication: BRONCHITIS
     Route: 048
     Dates: start: 20111223, end: 20111225
  3. ACETYLCYSTEINE [Concomitant]
     Indication: BRONCHITIS
  4. PREDNISOLONE [Concomitant]
     Indication: BRONCHITIS

REACTIONS (1)
  - ACUTE GENERALISED EXANTHEMATOUS PUSTULOSIS [None]
